FAERS Safety Report 8576257-2 (Version None)
Quarter: 2012Q3

REPORT INFORMATION
  Report Type: 
  Country: None (occurrence: None)
  Receive Date: 20120807
  Receipt Date: 20120802
  Transmission Date: 20120928
  Serious: Yes (Hospitalization)
  Sender: FDA-Public Use
  Company Number: PHHY2012FR067835

PATIENT
  Age: 74 Year
  Sex: Female
  Weight: 98 kg

DRUGS (12)
  1. ARIMIDEX [Concomitant]
     Dosage: UNK UKN, UNK
     Dates: start: 20060101
  2. ZOLEDRONOC ACID [Suspect]
     Indication: OSTEOPOROSIS
     Dosage: UNK UKN, UNK
     Dates: start: 20110704
  3. AMLODIPINE BESYLATE [Concomitant]
     Dosage: UNK UKN, UNK
     Dates: end: 20110101
  4. VITAMIN D [Concomitant]
     Dosage: UNK UKN, UNK
     Dates: start: 20110101
  5. SODIUM CHLORIDE [Concomitant]
     Dosage: UNK UKN, UNK
     Dates: start: 20120101
  6. PIASCLEDINE [Concomitant]
  7. ASPIRIN [Concomitant]
     Dosage: UNK UKN, UNK
     Dates: start: 20120101
  8. AMLODIPINE [Concomitant]
     Dosage: UNK UKN, UNK
     Dates: start: 20111101, end: 20120101
  9. ACETAMINOPHEN [Concomitant]
     Dosage: UNK UKN, UNK
     Dates: start: 20110101
  10. NEBIVOLOL [Concomitant]
     Dosage: UNK UKN, UNK
     Dates: start: 20120101
  11. RAMIPRIL [Concomitant]
     Dosage: UNK UKN, UNK
     Dates: start: 20120101
  12. LEVOTHYROXINE SODIUM [Concomitant]

REACTIONS (2)
  - NASAL POLYPS [None]
  - RESPIRATORY DISORDER [None]
